FAERS Safety Report 9467084 (Version 1)
Quarter: 2013Q3

REPORT INFORMATION
  Report Type: Spontaneous
  Country: CO (occurrence: CO)
  Receive Date: 20130820
  Receipt Date: 20130820
  Transmission Date: 20140515
  Serious: Yes (Other)
  Sender: FDA-Public Use
  Company Number: CO-PFIZER INC-2013238972

PATIENT
  Age: 62 Year
  Sex: Female

DRUGS (8)
  1. DETRUSITOL [Suspect]
     Indication: URINARY INCONTINENCE
     Dosage: 4 MG, 1X/DAY
     Route: 048
     Dates: start: 20130627, end: 201307
  2. OMEPRAZOLE [Concomitant]
     Indication: GASTRITIS EROSIVE
     Dosage: 20 MG, 1X/DAY
     Route: 048
     Dates: start: 1973
  3. AMBIGEL [Concomitant]
     Indication: GASTRITIS EROSIVE
     Dosage: 1X/DAY
     Route: 048
  4. DITOPAX F [Concomitant]
     Indication: GASTRITIS EROSIVE
     Dosage: UNK MG, 1X/DAY
     Route: 048
  5. BETAMETHASONE [Concomitant]
     Indication: PSORIASIS
     Dosage: AS NEEDED
     Route: 061
  6. DIPROSONE [Concomitant]
     Indication: PSORIASIS
     Dosage: AS NEEDED
     Route: 061
  7. ALUMINIUM ACETATE [Concomitant]
     Indication: PSORIASIS
     Dosage: AS NEEDED
     Route: 061
  8. FOLIC ACID [Concomitant]
     Indication: SKIN DISORDER
     Dosage: 5 MG, 1X/DAY
     Route: 048

REACTIONS (1)
  - Diarrhoea haemorrhagic [Recovering/Resolving]
